FAERS Safety Report 6236145-3 (Version None)
Quarter: 2009Q2

REPORT INFORMATION
  Report Type: 
  Country: None (occurrence: None)
  Receive Date: 20090619
  Receipt Date: 20090609
  Transmission Date: 20091009
  Serious: Yes (Death, Other)
  Sender: FDA-Public Use
  Company Number: JP-PFIZER INC-2009226260

PATIENT
  Age: 77 Year

DRUGS (1)
  1. VFEND [Suspect]
     Indication: BRONCHOPULMONARY ASPERGILLOSIS
     Dosage: 6 MG/KG, 1X/DAY
     Route: 042
     Dates: start: 20090604, end: 20090605

REACTIONS (2)
  - BRONCHOPULMONARY ASPERGILLOSIS [None]
  - HALLUCINATION [None]
